FAERS Safety Report 6129478-2 (Version None)
Quarter: 2009Q1

REPORT INFORMATION
  Report Type: 
  Country: None (occurrence: None)
  Receive Date: 20090324
  Receipt Date: 20090313
  Transmission Date: 20090719
  Serious: Yes (Death, Hospitalization, Other)
  Sender: FDA-Public Use
  Company Number: NL-PFIZER INC-2008083757

PATIENT

DRUGS (1)
  1. SUTENT [Suspect]
     Dosage: 50 UNK, 1X/DAY
     Route: 048
     Dates: start: 20071015, end: 20081028

REACTIONS (2)
  - DISEASE PROGRESSION [None]
  - PSYCHOTIC DISORDER [None]
